FAERS Safety Report 25866383 (Version 1)
Quarter: 2025Q3

REPORT INFORMATION
  Report Type: Spontaneous
  Country: EU (occurrence: EU)
  Receive Date: 20250930
  Receipt Date: 20250930
  Transmission Date: 20251021
  Serious: Yes (Life-Threatening, Hospitalization)
  Sender: MYLAN
  Company Number: None

PATIENT
  Age: 25 Year
  Sex: Male

DRUGS (12)
  1. POLYETHYLENE GLYCOLS [Suspect]
     Active Substance: POLYETHYLENE GLYCOLS
     Indication: Constipation
     Dosage: 10 GRAM, QD, : 2 DOSES OF 10G SPACED 12 HOURS APART
     Dates: start: 20241122, end: 20241123
  2. POLYETHYLENE GLYCOLS [Suspect]
     Active Substance: POLYETHYLENE GLYCOLS
     Dosage: 10 GRAM, QD, : 2 DOSES OF 10G SPACED 12 HOURS APART
     Route: 048
     Dates: start: 20241122, end: 20241123
  3. POLYETHYLENE GLYCOLS [Suspect]
     Active Substance: POLYETHYLENE GLYCOLS
     Dosage: 10 GRAM, QD, : 2 DOSES OF 10G SPACED 12 HOURS APART
     Route: 048
     Dates: start: 20241122, end: 20241123
  4. POLYETHYLENE GLYCOLS [Suspect]
     Active Substance: POLYETHYLENE GLYCOLS
     Dosage: 10 GRAM, QD, : 2 DOSES OF 10G SPACED 12 HOURS APART
     Dates: start: 20241122, end: 20241123
  5. ROXITHROMYCIN [Concomitant]
     Active Substance: ROXITHROMYCIN
     Indication: Tonsillitis
     Dates: start: 20241122, end: 20241122
  6. ROXITHROMYCIN [Concomitant]
     Active Substance: ROXITHROMYCIN
     Route: 048
     Dates: start: 20241122, end: 20241122
  7. ROXITHROMYCIN [Concomitant]
     Active Substance: ROXITHROMYCIN
     Route: 048
     Dates: start: 20241122, end: 20241122
  8. ROXITHROMYCIN [Concomitant]
     Active Substance: ROXITHROMYCIN
     Dates: start: 20241122, end: 20241122
  9. Charbon active [Concomitant]
     Indication: Gastrointestinal pain
     Dates: start: 20241122, end: 20241122
  10. Charbon active [Concomitant]
     Route: 048
     Dates: start: 20241122, end: 20241122
  11. Charbon active [Concomitant]
     Route: 048
     Dates: start: 20241122, end: 20241122
  12. Charbon active [Concomitant]
     Dates: start: 20241122, end: 20241122

REACTIONS (4)
  - Anaphylactic shock [Recovered/Resolved]
  - Laryngeal oedema [Recovered/Resolved]
  - Pruritus [Recovered/Resolved]
  - Chest discomfort [Recovered/Resolved]

NARRATIVE: CASE EVENT DATE: 20241123
